FAERS Safety Report 23682867 (Version 1)
Quarter: 2024Q1

REPORT INFORMATION
  Report Type: Report from Study
  Country: BR (occurrence: None)
  Receive Date: 20240328
  Receipt Date: 20240328
  Transmission Date: 20240410
  Serious: Yes (Death)
  Sender: FDA-Public Use
  Company Number: 2024A074799

PATIENT
  Sex: Female

DRUGS (1)
  1. TEZSPIRE [Suspect]
     Active Substance: TEZEPELUMAB-EKKO
     Dates: start: 20240325, end: 20240325

REACTIONS (1)
  - Death [Fatal]

NARRATIVE: CASE EVENT DATE: 20240301
